FAERS Safety Report 15806792 (Version 5)
Quarter: 2019Q1

REPORT INFORMATION
  Report Type: Report from Study
  Country: CA (occurrence: CA)
  Receive Date: 20190110
  Receipt Date: 20190212
  Transmission Date: 20190417
  Serious: Yes (Other)
  Sender: FDA-Public Use
  Company Number: CA-GLAXOSMITHKLINE-CA2018GSK224053

PATIENT
  Sex: Male

DRUGS (2)
  1. VENTOLIN [Suspect]
     Active Substance: ALBUTEROL SULFATE
     Indication: ASTHMA
     Dosage: UNK
  2. MEPOLIZUMAB [Suspect]
     Active Substance: MEPOLIZUMAB
     Indication: ASTHMA
     Dosage: 100 MG, Z,MONTHLY
     Route: 042
     Dates: start: 20190114

REACTIONS (11)
  - Pain in extremity [Unknown]
  - White blood cell count increased [Unknown]
  - Drug effect incomplete [Unknown]
  - Asthma [Unknown]
  - Respiration abnormal [Unknown]
  - Adverse drug reaction [Unknown]
  - Loss of personal independence in daily activities [Unknown]
  - Cough [Unknown]
  - Blood pressure increased [Unknown]
  - Eosinophilic granulomatosis with polyangiitis [Unknown]
  - Dyspnoea [Recovering/Resolving]
